FAERS Safety Report 5192695-2 (Version None)
Quarter: 2006Q4

REPORT INFORMATION
  Report Type: 
  Country: None (occurrence: None)
  Receive Date: 20061228
  Receipt Date: 20061218
  Transmission Date: 20070319
  Serious: Yes (Hospitalization)
  Sender: FDA-Public Use
  Company Number: US-JNJFOC-20061004400

PATIENT
  Sex: Female
  Weight: 62.6 kg

DRUGS (7)
  1. REMICADE [Suspect]
     Dosage: WEEK 22; PATIENT RECEIVED ONLY 18 CC OF INFLIXIMAB AT MOST.
     Route: 042
  2. REMICADE [Suspect]
     Dosage: WEEK 14
     Route: 042
  3. REMICADE [Suspect]
     Dosage: WEEK6
     Route: 042
  4. REMICADE [Suspect]
     Dosage: WEEK 2
     Route: 042
  5. REMICADE [Suspect]
     Indication: RHEUMATOID ARTHRITIS
     Dosage: WEEK 0
     Route: 042
  6. SEROQUEL [Concomitant]
  7. XANAX [Concomitant]

REACTIONS (3)
  - ARTERIOSPASM CORONARY [None]
  - INFUSION RELATED REACTION [None]
  - MYOCARDIAL INFARCTION [None]
